FAERS Safety Report 20465923 (Version 1)
Quarter: 2022Q1

REPORT INFORMATION
  Report Type: Spontaneous
  Country: FR (occurrence: FR)
  Receive Date: 20220212
  Receipt Date: 20220212
  Transmission Date: 20220423
  Serious: Yes (Death)
  Sender: FDA-Public Use
  Company Number: FR-NOVARTISPH-NVSC2022FR033213

PATIENT

DRUGS (3)
  1. CLOMIPRAMINE HYDROCHLORIDE [Suspect]
     Active Substance: CLOMIPRAMINE HYDROCHLORIDE
     Indication: Foetal exposure during pregnancy
     Dosage: UNK (LAST ADMINISTRATION 30 MAR 2021)
     Route: 064
  2. SERTRALINE HYDROCHLORIDE [Suspect]
     Active Substance: SERTRALINE HYDROCHLORIDE
     Indication: Foetal exposure during pregnancy
     Dosage: UNK (LAST ADMINISTRATION 30 MAR 2021)
     Route: 064
  3. PRAZEPAM [Concomitant]
     Active Substance: PRAZEPAM
     Indication: Foetal exposure during pregnancy
     Dosage: UNK
     Route: 064
     Dates: end: 20210324

REACTIONS (1)
  - Death neonatal [Fatal]

NARRATIVE: CASE EVENT DATE: 20210330
